FAERS Safety Report 12399306 (Version 1)
Quarter: 2016Q2

REPORT INFORMATION
  Report Type: Spontaneous
  Country: FR (occurrence: FR)
  Receive Date: 20160524
  Receipt Date: 20160524
  Transmission Date: 20160815
  Serious: Yes (Life-Threatening)
  Sender: FDA-Public Use
  Company Number: FR-PFIZER INC-2016265927

PATIENT
  Age: 61 Year
  Sex: Male

DRUGS (10)
  1. RAMIPRIL. [Concomitant]
     Active Substance: RAMIPRIL
  2. CEFAZOLINE PANPHARMA [Suspect]
     Active Substance: CEFAZOLIN SODIUM
     Indication: PROPHYLAXIS
     Dosage: UNK
     Route: 041
     Dates: start: 20160413, end: 20160413
  3. SUFENTA [Suspect]
     Active Substance: SUFENTANIL CITRATE
     Indication: ANAESTHESIA
     Dosage: UNK
     Route: 041
     Dates: start: 20160413, end: 20160413
  4. DEXAMETHASONE. [Suspect]
     Active Substance: DEXAMETHASONE
     Indication: ANAESTHESIA
     Dosage: UNK
     Route: 042
     Dates: start: 20160413, end: 20160413
  5. XYLOCAINE [Suspect]
     Active Substance: LIDOCAINE HYDROCHLORIDE
     Indication: ANAESTHESIA
     Dosage: UNK
     Route: 041
     Dates: start: 20160413, end: 20160413
  6. ATORVASTATIN [Concomitant]
     Active Substance: ATORVASTATIN
  7. ATRACURIUM BESILATE [Suspect]
     Active Substance: ATRACURIUM BESYLATE
     Indication: ANAESTHESIA
     Dosage: UNK
     Route: 041
     Dates: start: 20160413, end: 20160413
  8. PROPOFOL. [Suspect]
     Active Substance: PROPOFOL
     Indication: ANAESTHESIA
     Dosage: UNK
     Route: 041
     Dates: start: 20160413, end: 20160413
  9. ACEBUTOLOL [Concomitant]
     Active Substance: ACEBUTOLOL
  10. KARDEGIC [Concomitant]
     Active Substance: ASPIRIN LYSINE

REACTIONS (1)
  - Anaphylactic shock [Recovered/Resolved]

NARRATIVE: CASE EVENT DATE: 20160413
